FAERS Safety Report 5750653-0 (Version None)
Quarter: 2008Q2

REPORT INFORMATION
  Report Type: 
  Country: None (occurrence: None)
  Receive Date: 20080523
  Receipt Date: 20080523
  Transmission Date: 20081010
  Serious: Yes (Other)
  Sender: FDA-Public Use
  Company Number: None

PATIENT
  Sex: Male
  Weight: 58.18 kg

DRUGS (1)
  1. BENADRYL [Suspect]
     Indication: PRURITUS
     Dosage: 25 MG  IV
     Route: 042
     Dates: start: 20080515, end: 20080515

REACTIONS (6)
  - COUGH [None]
  - DRUG HYPERSENSITIVITY [None]
  - EYE ROLLING [None]
  - GAZE PALSY [None]
  - HEART RATE INCREASED [None]
  - RESPIRATORY RATE INCREASED [None]
